FAERS Safety Report 13410696 (Version 1)
Quarter: 2017Q2

REPORT INFORMATION
  Report Type: Spontaneous
  Country: BR (occurrence: BR)
  Receive Date: 20170406
  Receipt Date: 20170406
  Transmission Date: 20170830
  Serious: Yes (Life-Threatening, Other)
  Sender: FDA-Public Use
  Company Number: BR-PFIZER INC-2017027934

PATIENT
  Age: 33 Year
  Sex: Male

DRUGS (3)
  1. GEODON [Suspect]
     Active Substance: ZIPRASIDONE HYDROCHLORIDE\ZIPRASIDONE MESYLATE
     Indication: BIPOLAR DISORDER
     Dosage: UNK
     Dates: start: 2012
  2. GEODON [Suspect]
     Active Substance: ZIPRASIDONE HYDROCHLORIDE\ZIPRASIDONE MESYLATE
     Indication: SCHIZOPHRENIA
  3. GEODON [Suspect]
     Active Substance: ZIPRASIDONE HYDROCHLORIDE\ZIPRASIDONE MESYLATE
     Indication: OBSESSIVE-COMPULSIVE DISORDER

REACTIONS (8)
  - Insomnia [Unknown]
  - Depression [Unknown]
  - Restlessness [Unknown]
  - Hyperphagia [Unknown]
  - Suicide attempt [Unknown]
  - Agitation [Unknown]
  - Nervousness [Unknown]
  - Anxiety [Unknown]
